FAERS Safety Report 7656514-4 (Version None)
Quarter: 2011Q3

REPORT INFORMATION
  Report Type: 
  Country: None (occurrence: None)
  Receive Date: 20110804
  Receipt Date: 20101008
  Transmission Date: 20111222
  Serious: No
  Sender: FDA-Public Use
  Company Number: US-BAUSCH-2010BL005539

PATIENT
  Age: 55 Year
  Sex: Female

DRUGS (1)
  1. OPCON-A [Suspect]
     Indication: OCULAR HYPERAEMIA
     Route: 047
     Dates: start: 20100928, end: 20100928

REACTIONS (5)
  - FOREIGN BODY SENSATION IN EYES [None]
  - EYE PRURITUS [None]
  - EYELID OEDEMA [None]
  - EYE IRRITATION [None]
  - EXPIRED DRUG ADMINISTERED [None]
